FAERS Safety Report 6788231-7 (Version None)
Quarter: 2010Q2

REPORT INFORMATION
  Report Type: 
  Country: None (occurrence: None)
  Receive Date: 20100623
  Receipt Date: 20080313
  Transmission Date: 20101027
  Serious: No
  Sender: FDA-Public Use
  Company Number: US-PFIZER INC-2008003167

PATIENT
  Sex: Male
  Weight: 76.66 kg

DRUGS (1)
  1. DIDREX [Suspect]
     Indication: WEIGHT DECREASED
     Route: 048
     Dates: start: 20070119, end: 20070808

REACTIONS (2)
  - DRUG SCREEN POSITIVE [None]
  - URINE AMPHETAMINE POSITIVE [None]
